FAERS Safety Report 24757673 (Version 1)
Quarter: 2024Q4

REPORT INFORMATION
  Report Type: Spontaneous
  Country: US (occurrence: US)
  Receive Date: 20241220
  Receipt Date: 20241220
  Transmission Date: 20250114
  Serious: Yes (Hospitalization, Other)
  Sender: AUROBINDO
  Company Number: US-MLMSERVICE-20241203-PI274190-00271-2

PATIENT
  Age: 59 Year
  Sex: Female

DRUGS (3)
  1. AMIODARONE HYDROCHLORIDE [Suspect]
     Active Substance: AMIODARONE HYDROCHLORIDE
     Indication: Atrial fibrillation
     Dosage: UNK
     Route: 065
     Dates: start: 202310
  2. PREDNISONE [Suspect]
     Active Substance: PREDNISONE
     Indication: Immune-mediated enterocolitis
     Dosage: UNK, HIGH-DOSE PREDNISONE TAPER OVER 4 MONTHS
     Route: 065
     Dates: start: 2023
  3. PEMBROLIZUMAB [Suspect]
     Active Substance: PEMBROLIZUMAB
     Indication: Endometrial cancer
     Dosage: UNK
     Route: 065
     Dates: start: 202309, end: 202312

REACTIONS (2)
  - Immune-mediated adrenal insufficiency [Recovered/Resolved]
  - Hypothalamic pituitary adrenal axis suppression [Unknown]
